FAERS Safety Report 22127392 (Version 1)
Quarter: 2023Q1

REPORT INFORMATION
  Report Type: Spontaneous
  Country: TR (occurrence: TR)
  Receive Date: 20230322
  Receipt Date: 20230322
  Transmission Date: 20230417
  Serious: Yes (Death, Hospitalization, Other)
  Sender: FDA-Public Use
  Company Number: TR-CELGENE-TUR-20210804663

PATIENT
  Age: 73 Year
  Sex: Male
  Weight: 50 kg

DRUGS (49)
  1. AZACITIDINE [Suspect]
     Active Substance: AZACITIDINE
     Indication: Myelodysplastic syndrome
     Dosage: FREQUENCY TEXT: C1 D1-7
     Route: 058
     Dates: start: 20210503, end: 20210509
  2. AZACITIDINE [Suspect]
     Active Substance: AZACITIDINE
     Dosage: FREQUENCY TEXT: C1 D1-7
     Route: 058
     Dates: start: 20210805, end: 20210811
  3. AZACITIDINE [Suspect]
     Active Substance: AZACITIDINE
     Dosage: 101 DAYS
     Route: 058
     Dates: start: 20210503, end: 20210811
  4. VENETOCLAX [Suspect]
     Active Substance: VENETOCLAX
     Indication: Myelodysplastic syndrome
     Dosage: 400 MILLIGRAM
     Route: 048
     Dates: start: 20210503, end: 20210516
  5. VENETOCLAX [Suspect]
     Active Substance: VENETOCLAX
     Dosage: 400 MILLIGRAM
     Route: 048
     Dates: start: 20210805, end: 20210811
  6. VENETOCLAX [Suspect]
     Active Substance: VENETOCLAX
     Dosage: 13 DAYS?400 MG DAYS 1 - 14 OF EACH 28-DAY CYCLE,?EVERY 1 DAYS
     Route: 048
     Dates: start: 20210503, end: 20210811
  7. METOPROLOL SUCCINATE [Concomitant]
     Active Substance: METOPROLOL SUCCINATE
     Indication: Coronary artery disease
     Dosage: 50 MILLIGRAM
     Route: 048
     Dates: start: 201201
  8. ASPIRIN [Concomitant]
     Active Substance: ASPIRIN
     Indication: Coronary artery disease
     Dosage: 150 MILLIGRAM
     Route: 048
     Dates: start: 201201, end: 20210526
  9. PIRACETAM [Concomitant]
     Active Substance: PIRACETAM
     Indication: Dementia
     Dosage: 800 MILLIGRAM
     Route: 048
     Dates: start: 2013
  10. EXELON [Concomitant]
     Active Substance: RIVASTIGMINE TARTRATE
     Indication: Dementia
     Dosage: 4.5 MILLIGRAM
     Route: 048
     Dates: start: 2013
  11. TAMSULOSIN HYDROCHLORIDE [Concomitant]
     Active Substance: TAMSULOSIN HYDROCHLORIDE
     Indication: Benign prostatic hyperplasia
     Dosage: .4 MILLIGRAM
     Route: 048
     Dates: start: 202012, end: 20210810
  12. TOVIAZ [Concomitant]
     Active Substance: FESOTERODINE FUMARATE
     Indication: Benign prostatic hyperplasia
     Dosage: 4 MILLIGRAM
     Route: 048
     Dates: start: 202012
  13. DEXKETOPROFEN [Concomitant]
     Active Substance: DEXKETOPROFEN
     Indication: Pain
     Dosage: FREQUENCY TEXT: PRN
     Route: 048
     Dates: start: 2013
  14. Panto [Concomitant]
     Indication: Prophylaxis
     Dosage: 40 MILLIGRAM
     Route: 048
     Dates: start: 201201
  15. GRANITRON [Concomitant]
     Indication: Nausea
     Dosage: 3 MILLIGRAM
     Route: 042
     Dates: start: 20210503, end: 20210503
  16. GRANITRON [Concomitant]
     Route: 042
     Dates: start: 20210805, end: 20210807
  17. PHENIRAMINE [Concomitant]
     Active Substance: PHENIRAMINE
     Indication: Prophylaxis of nausea and vomiting
     Dosage: 45.5 MILLIGRAM
     Route: 042
     Dates: start: 20210504, end: 20210509
  18. PHENIRAMINE [Concomitant]
     Active Substance: PHENIRAMINE
     Dosage: 45.5 MILLIGRAM
     Route: 048
     Dates: start: 20210505
  19. KYTRIL [Concomitant]
     Active Substance: GRANISETRON HYDROCHLORIDE
     Indication: Prophylaxis of nausea and vomiting
     Dosage: 3 MILLIGRAM
     Route: 042
     Dates: start: 20210504, end: 20210509
  20. OROHEKS PLUS [Concomitant]
     Indication: Prophylaxis
     Dosage: 30 MILLILITER
     Route: 048
     Dates: start: 20210505, end: 20210509
  21. SODIUM BICARBONATE [Concomitant]
     Active Substance: SODIUM BICARBONATE
     Indication: Antifungal prophylaxis
     Route: 048
     Dates: start: 20210505, end: 20210509
  22. SODIUM BICARBONATE [Concomitant]
     Active Substance: SODIUM BICARBONATE
     Dosage: 50 MILLILITER
     Route: 048
     Dates: start: 20210526, end: 20210609
  23. SODIUM BICARBONATE [Concomitant]
     Active Substance: SODIUM BICARBONATE
     Route: 048
     Dates: start: 20210727
  24. PANTOPRAZOLE SODIUM [Concomitant]
     Active Substance: PANTOPRAZOLE SODIUM
     Indication: Prophylaxis
     Dosage: 40 MILLIGRAM
     Route: 042
     Dates: start: 20210505, end: 20210505
  25. PANTOPRAZOLE SODIUM [Concomitant]
     Active Substance: PANTOPRAZOLE SODIUM
     Dosage: 40 MILLIGRAM
     Route: 042
     Dates: start: 20210525, end: 20210609
  26. PARTEMOL [Concomitant]
     Indication: Pain
     Dosage: 10 MILLIGRAM
     Route: 042
     Dates: start: 20210507, end: 20210508
  27. PARTEMOL [Concomitant]
     Dosage: 10 MILLIGRAM
     Route: 042
     Dates: start: 20210526, end: 20210609
  28. PARTEMOL [Concomitant]
     Route: 042
     Dates: start: 20210806, end: 20210806
  29. PARTEMOL [Concomitant]
     Route: 042
     Dates: start: 20210809, end: 20210809
  30. EUTHYROX [Concomitant]
     Active Substance: LEVOTHYROXINE SODIUM
     Indication: Hypothyroidism
     Dosage: 50 MILLIGRAM
     Route: 048
     Dates: start: 1993
  31. URSODIOL [Concomitant]
     Active Substance: URSODIOL
     Indication: Cholelithiasis
     Dosage: 500 MILLIGRAM
     Route: 048
     Dates: start: 20210517
  32. TAZERACIN [Concomitant]
     Indication: Pneumonia
     Route: 042
     Dates: start: 20210526, end: 20210608
  33. Lexsan [Concomitant]
     Indication: Pneumonia
     Route: 042
     Dates: start: 20210526, end: 20210608
  34. FRAVEN [Concomitant]
     Indication: Neutropenia
     Dosage: 30 MIU
     Route: 058
     Dates: start: 20210526, end: 20210609
  35. Orohex [Concomitant]
     Indication: Antifungal prophylaxis
     Dosage: 30 MILLILITER
     Route: 048
     Dates: start: 20210526, end: 20210527
  36. Orohex [Concomitant]
     Indication: Dental disorder prophylaxis
     Route: 048
     Dates: start: 20210528, end: 20210528
  37. Orohex [Concomitant]
     Route: 048
     Dates: start: 20210529, end: 20210609
  38. Orohex [Concomitant]
     Route: 048
     Dates: start: 20210728
  39. Asist [Concomitant]
     Indication: Antifungal prophylaxis
     Dosage: 900 MILLIGRAM
     Route: 042
     Dates: start: 20210528, end: 20210609
  40. FILGRASTIM [Concomitant]
     Active Substance: FILGRASTIM
     Indication: Neutropenia
     Dosage: 30 MIU
     Route: 058
     Dates: start: 20210609, end: 20210614
  41. Locafen cream [Concomitant]
     Indication: Haemorrhoids
     Dosage: 60 GRAM
     Route: 054
     Dates: start: 20210607
  42. EXELON PATCH [Concomitant]
     Active Substance: RIVASTIGMINE
     Indication: Pain
     Dosage: 18 MILLIGRAM
     Route: 061
     Dates: start: 20210727
  43. Seroquel 30 [Concomitant]
     Indication: Dementia
     Dosage: 25 MILLIGRAM
     Route: 048
     Dates: start: 20210730
  44. DEKORT [Concomitant]
     Active Substance: DEXAMETHASONE
     Indication: Prophylaxis
     Dosage: 8 MILLIGRAM
     Route: 048
     Dates: start: 20210805
  45. NEUPOGEN [Concomitant]
     Active Substance: FILGRASTIM
     Indication: Neutropenia
     Dosage: 30 MIU
     Route: 058
     Dates: start: 20210806
  46. LEVOFLOXACIN [Concomitant]
     Active Substance: LEVOFLOXACIN
     Indication: Anti-infective therapy
     Dosage: 500 MILLIGRAM
     Route: 048
     Dates: start: 20210805
  47. Localen Pomad [Concomitant]
     Indication: Haemorrhoids
     Dosage: 60 GRAM
     Route: 048
     Dates: start: 20210809
  48. FENTANYL [Concomitant]
     Active Substance: FENTANYL
     Indication: Pain
     Dosage: 4.2 MILLIGRAM, 1 IN 1
     Dates: start: 20210623
  49. TRAMADOL HYDROCHLORIDE [Concomitant]
     Active Substance: TRAMADOL HYDROCHLORIDE
     Indication: Pain
     Dosage: 20 MILLILITER
     Route: 048
     Dates: start: 20210623

REACTIONS (4)
  - Pneumonia [Fatal]
  - Supraventricular tachycardia [Not Recovered/Not Resolved]
  - General physical condition abnormal [Not Recovered/Not Resolved]
  - Neutropenia [Unknown]

NARRATIVE: CASE EVENT DATE: 20210810
